FAERS Safety Report 24613006 (Version 1)
Quarter: 2024Q4

REPORT INFORMATION
  Report Type: Spontaneous
  Country: CA (occurrence: CA)
  Receive Date: 20241113
  Receipt Date: 20241113
  Transmission Date: 20250115
  Serious: Yes (Death, Other)
  Sender: PFIZER
  Company Number: CA-PFIZER INC-202400298865

PATIENT
  Age: 57 Year
  Sex: Female

DRUGS (2)
  1. RITUXIMAB [Suspect]
     Active Substance: RITUXIMAB
     Indication: Granulomatosis with polyangiitis
     Dosage: 1000 MG
     Route: 042
  2. CLONAZEPAM [Suspect]
     Active Substance: CLONAZEPAM
     Dosage: 0.25 MG
     Route: 065

REACTIONS (2)
  - Death [Fatal]
  - Somnolence [Fatal]
